FAERS Safety Report 14723435 (Version 2)
Quarter: 2018Q2

REPORT INFORMATION
  Report Type: Spontaneous
  Country: RU (occurrence: RU)
  Receive Date: 20180405
  Receipt Date: 20180418
  Transmission Date: 20180711
  Serious: Yes (Hospitalization, Other)
  Sender: FDA-Public Use
  Company Number: RU-ASTRAZENECA-2018SE22878

PATIENT
  Age: 59 Year
  Sex: Female
  Weight: 72 kg

DRUGS (5)
  1. ROSUVASTATIN. [Concomitant]
     Active Substance: ROSUVASTATIN
     Dates: start: 201707
  2. TRIMETAZIDINE [Concomitant]
     Active Substance: TRIMETAZIDINE
     Dates: start: 201707
  3. BRILINTA [Suspect]
     Active Substance: TICAGRELOR
     Indication: ANGINA UNSTABLE
     Route: 048
     Dates: start: 20180327
  4. ASPIRIN CARDIO (ASA) [Concomitant]
     Dates: start: 201707
  5. BRILINTA [Suspect]
     Active Substance: TICAGRELOR
     Indication: ANGINA UNSTABLE
     Route: 048
     Dates: start: 20171211, end: 20180315

REACTIONS (4)
  - Red blood cell sedimentation rate increased [Unknown]
  - Platelet count increased [Unknown]
  - Post procedural haemorrhage [Unknown]
  - Cholecystitis infective [Unknown]
